FAERS Safety Report 9449056 (Version 1)
Quarter: 2013Q3

REPORT INFORMATION
  Report Type: Spontaneous
  Country: JP (occurrence: None)
  Receive Date: 20130806
  Receipt Date: 20130806
  Transmission Date: 20140515
  Serious: Yes (Death, Hospitalization)
  Sender: FDA-Public Use
  Company Number: POI0580201300003

PATIENT
  Age: 76 Year
  Sex: Female

DRUGS (1)
  1. ETODOLAC [Suspect]
     Indication: SPINAL OSTEOARTHRITIS

REACTIONS (7)
  - Cough [None]
  - Oropharyngeal pain [None]
  - Toxic epidermal necrolysis [None]
  - Histiocytosis haematophagic [None]
  - Hepatic function abnormal [None]
  - Sepsis [None]
  - Interleukin level increased [None]
